FAERS Safety Report 6885646-3 (Version None)
Quarter: 2010Q3

REPORT INFORMATION
  Report Type: 
  Country: None (occurrence: None)
  Receive Date: 20100729
  Receipt Date: 20080519
  Transmission Date: 20110219
  Serious: No
  Sender: FDA-Public Use
  Company Number: US-PFIZER INC-2008026876

PATIENT
  Age: 47 Year
  Sex: Male
  Weight: 79.38 kg

DRUGS (1)
  1. CELEBREX [Suspect]
     Indication: BACK PAIN
     Route: 048

REACTIONS (3)
  - RASH MACULO-PAPULAR [None]
  - SWOLLEN TONGUE [None]
  - URTICARIA [None]
